FAERS Safety Report 14276310 (Version 3)
Quarter: 2018Q1

REPORT INFORMATION
  Report Type: Report from Study
  Country: US (occurrence: US)
  Receive Date: 20171212
  Receipt Date: 20180329
  Transmission Date: 20180508
  Serious: Yes (Hospitalization, Other)
  Sender: FDA-Public Use
  Company Number: US-ROCHE-2035716

PATIENT
  Sex: Female

DRUGS (21)
  1. PROZAC [Concomitant]
     Active Substance: FLUOXETINE HYDROCHLORIDE
     Route: 048
  2. ADDERALL XR [Concomitant]
     Active Substance: AMPHETAMINE ASPARTATE\AMPHETAMINE SULFATE\DEXTROAMPHETAMINE SACCHARATE\DEXTROAMPHETAMINE SULFATE
     Dosage: AT MORNING
     Route: 048
  3. SPIRIVA [Concomitant]
     Active Substance: TIOTROPIUM BROMIDE MONOHYDRATE
     Dosage: 2.5MG/ACT; 2 PUFFS
     Route: 065
  4. PREDNISONE. [Concomitant]
     Active Substance: PREDNISONE
     Route: 048
  5. ALBUTEROL SULFATE. [Concomitant]
     Active Substance: ALBUTEROL SULFATE
     Route: 045
  6. EFFEXOR [Concomitant]
     Active Substance: VENLAFAXINE HYDROCHLORIDE
     Dosage: WITH FOOD
     Route: 048
  7. PROAIR HFA [Concomitant]
     Active Substance: ALBUTEROL SULFATE
     Dosage: 108MCG/ACT
     Route: 065
  8. XOLAIR [Suspect]
     Active Substance: OMALIZUMAB
     Indication: ASTHMA
     Route: 058
  9. TOPAMAX [Concomitant]
     Active Substance: TOPIRAMATE
     Dosage: 1 IN AM AND 1 IN PM
     Route: 048
  10. BUSPIRONE [Concomitant]
     Active Substance: BUSPIRONE HYDROCHLORIDE
     Dosage: 3 TABS TWICE A DAY
     Route: 048
  11. FLORINEF ACETATE [Concomitant]
     Active Substance: FLUDROCORTISONE ACETATE
     Route: 048
  12. EPIPEN [Concomitant]
     Active Substance: EPINEPHRINE
     Dosage: 0.3 MG/0.3ML
     Route: 065
  13. LATUDA [Concomitant]
     Active Substance: LURASIDONE HYDROCHLORIDE
     Route: 048
  14. IVABRADINE [Concomitant]
     Active Substance: IVABRADINE
     Dosage: WITH MEAL
     Route: 048
  15. TRAZODONE [Concomitant]
     Active Substance: TRAZODONE HYDROCHLORIDE
     Dosage: AT BED TIME
     Route: 048
  16. VITAMIN B6 [Concomitant]
     Active Substance: PYRIDOXINE HYDROCHLORIDE
     Route: 048
  17. MIDRIN [Concomitant]
     Active Substance: ACETAMINOPHEN\DICHLORALPHENAZONE\ISOMETHEPTENE
  18. XOLAIR [Suspect]
     Active Substance: OMALIZUMAB
     Route: 058
  19. PROVIGIL [Concomitant]
     Active Substance: MODAFINIL
     Dosage: 2 IN MORNING AND 1 IN AFTERNOON
     Route: 048
  20. SINGULAIR [Concomitant]
     Active Substance: MONTELUKAST SODIUM
     Dosage: IN EVENING
     Route: 048
  21. BREO ELLIPTA [Concomitant]
     Active Substance: FLUTICASONE FUROATE\VILANTEROL TRIFENATATE
     Route: 045

REACTIONS (8)
  - Tachycardia [Unknown]
  - Gastrointestinal sounds abnormal [Unknown]
  - Road traffic accident [Unknown]
  - Weight decreased [Unknown]
  - Suicide attempt [Unknown]
  - Pain in extremity [Unknown]
  - Neck pain [Unknown]
  - Chest pain [Unknown]
